FAERS Safety Report 18653933 (Version 3)
Quarter: 2021Q1

REPORT INFORMATION
  Report Type: Spontaneous
  Country: US (occurrence: US)
  Receive Date: 20201223
  Receipt Date: 20210301
  Transmission Date: 20210419
  Serious: No
  Sender: FDA-Public Use
  Company Number: US-SA-2020SA367369

PATIENT
  Age: 73 Year
  Sex: Male

DRUGS (17)
  1. GLUCOSAMINE + CHONDORITIN [Concomitant]
  2. HYDROXYZINE [Concomitant]
     Active Substance: HYDROXYZINE HYDROCHLORIDE
  3. HYDRALAZINE [Concomitant]
     Active Substance: HYDRALAZINE HYDROCHLORIDE
  4. PREDNISONE. [Concomitant]
     Active Substance: PREDNISONE
  5. VITAMIN D [VITAMIN D NOS] [Concomitant]
     Active Substance: VITAMIN D NOS
  6. ZOLPIDEM [Concomitant]
     Active Substance: ZOLPIDEM TARTRATE
  7. VITAMIN E NOS [Concomitant]
     Active Substance: .ALPHA.-TOCOPHEROL
  8. SYNTHROID [Concomitant]
     Active Substance: LEVOTHYROXINE SODIUM
  9. ALPRAZOLAM. [Concomitant]
     Active Substance: ALPRAZOLAM
  10. DUPIXENT [Suspect]
     Active Substance: DUPILUMAB
     Dosage: 300 MG, QOW (1 PEN)
     Route: 058
     Dates: start: 20201111
  11. MAGNESIUM [Concomitant]
     Active Substance: MAGNESIUM
  12. AMITRIPTYLINE [Suspect]
     Active Substance: AMITRIPTYLINE
  13. EZETIMIBE. [Concomitant]
     Active Substance: EZETIMIBE
  14. OLMESARTAN [Concomitant]
     Active Substance: OLMESARTAN
  15. DUPIXENT [Suspect]
     Active Substance: DUPILUMAB
     Indication: DERMATITIS ATOPIC
     Dosage: 600 MG, 1X (2 PENS)
     Route: 058
     Dates: start: 202011, end: 202011
  16. TRIAMCINOLONE [Concomitant]
     Active Substance: TRIAMCINOLONE
  17. METOPROLOL SUCCINATE. [Concomitant]
     Active Substance: METOPROLOL SUCCINATE

REACTIONS (7)
  - Skin swelling [Unknown]
  - Erythema [Unknown]
  - Blood pressure increased [Unknown]
  - Contusion [Recovered/Resolved]
  - Blood blister [Recovered/Resolved]
  - Skin atrophy [Unknown]
  - Skin exfoliation [Unknown]

NARRATIVE: CASE EVENT DATE: 2020
